FAERS Safety Report 21726375 (Version 1)
Quarter: 2022Q4

REPORT INFORMATION
  Report Type: Other
  Country: GB (occurrence: GB)
  Receive Date: 20221214
  Receipt Date: 20221214
  Transmission Date: 20230113
  Serious: Yes (Other)
  Sender: FDA-Public Use
  Company Number: GB-MACLEODS PHARMACEUTICALS US LTD-MAC2022038745

PATIENT

DRUGS (5)
  1. ARIPIPRAZOLE [Suspect]
     Active Substance: ARIPIPRAZOLE
     Indication: Product used for unknown indication
     Dosage: 5 MILLIGRAM, QD IN THE MORNING
     Route: 065
     Dates: start: 20220111
  2. Wave pharma duloxetine [Concomitant]
     Indication: Product used for unknown indication
     Dosage: 1 DOSAGE FORM, QD IN THE MORNING
     Route: 065
     Dates: start: 20220209
  3. ESTRADIOL [Concomitant]
     Active Substance: ESTRADIOL
     Indication: Product used for unknown indication
     Dosage: 1 DOSAGE FORM, QD APPLY ONCE DAILY
     Route: 065
     Dates: start: 20220912, end: 20221012
  4. PROGESTERONE [Concomitant]
     Active Substance: PROGESTERONE
     Indication: Product used for unknown indication
     Dosage: 1 DOSAGE FORM, QD (AT BEDTIME. TAKE FO)
     Route: 065
     Dates: start: 20220912, end: 20221111
  5. QUETIAPINE [Concomitant]
     Active Substance: QUETIAPINE
     Indication: Product used for unknown indication
     Dosage: 12.5 MILLIGRAM, QD AT NIGHT
     Route: 065
     Dates: start: 20220209

REACTIONS (2)
  - Sedation complication [Recovering/Resolving]
  - Binge eating [Recovering/Resolving]

NARRATIVE: CASE EVENT DATE: 20221122
